FAERS Safety Report 16682370 (Version 2)
Quarter: 2019Q4

REPORT INFORMATION
  Report Type: Spontaneous
  Country: US (occurrence: US)
  Receive Date: 20190808
  Receipt Date: 20191021
  Transmission Date: 20200122
  Serious: Yes (Other)
  Sender: FDA-Public Use
  Company Number: US-PFIZER INC-2019334819

PATIENT

DRUGS (4)
  1. PREDNISONE. [Suspect]
     Active Substance: PREDNISONE
     Dosage: UNK, DAILY
  2. PLAQUENIL [Suspect]
     Active Substance: HYDROXYCHLOROQUINE SULFATE
     Dosage: UNK, DAILY
  3. SOLU-MEDROL [Suspect]
     Active Substance: METHYLPREDNISOLONE SODIUM SUCCINATE
     Dosage: UNK, [BOOSTS 125 SOLUMEDROL]
  4. BENLYSTA [Suspect]
     Active Substance: BELIMUMAB
     Dosage: UNK, DAILY

REACTIONS (5)
  - Diabetes mellitus [Unknown]
  - Systemic lupus erythematosus [Unknown]
  - Total lung capacity decreased [Unknown]
  - Vasculitis [Unknown]
  - Autoimmune thyroiditis [Unknown]
